FAERS Safety Report 8437795-6 (Version None)
Quarter: 2012Q2

REPORT INFORMATION
  Report Type: 
  Country: None (occurrence: None)
  Receive Date: 20120614
  Receipt Date: 20120511
  Transmission Date: 20120825
  Serious: No
  Sender: FDA-Public Use
  Company Number: US-AMGEN-USASP2012025088

PATIENT
  Age: 76 Year
  Sex: Female
  Weight: 52.154 kg

DRUGS (6)
  1. LISINOPRIL [Concomitant]
     Indication: HYPERTENSION
     Dosage: 20 MG, QD
     Dates: start: 20110801
  2. PROLIA [Suspect]
     Indication: OSTEOPOROSIS POSTMENOPAUSAL
     Dosage: 60 MG, Q6MO
     Route: 058
     Dates: start: 20110907
  3. VITAMIN C + E [Concomitant]
     Indication: SUPPLEMENTATION THERAPY
     Dosage: UNK UNK, QD
     Route: 048
  4. BIOTIN [Concomitant]
     Indication: SUPPLEMENTATION THERAPY
     Dosage: 500 MG, QD
     Route: 048
  5. FLUTICASONE FUROATE [Concomitant]
     Indication: HYPERSENSITIVITY
     Dosage: UNK UNK, BID
     Route: 045
  6. CALCIUM VITAMIN D [Concomitant]
     Indication: OSTEOPENIA
     Dosage: UNK UNK, TID
     Route: 048

REACTIONS (1)
  - PRURITUS [None]
